FAERS Safety Report 17765328 (Version 3)
Quarter: 2020Q3

REPORT INFORMATION
  Report Type: Spontaneous
  Country: US (occurrence: US)
  Receive Date: 20200511
  Receipt Date: 20200708
  Transmission Date: 20201102
  Serious: Yes (Other)
  Sender: FDA-Public Use
  Company Number: US-PFIZER INC-2020186212

PATIENT
  Age: 44 Year
  Sex: Male
  Weight: 74.38 kg

DRUGS (9)
  1. AZITHROMYCIN ANHYDROUS. [Suspect]
     Active Substance: AZITHROMYCIN ANHYDROUS
     Indication: EAR PAIN
     Dosage: 250 MG (2 INITIAL 250 MG 1 FROM THERE ON)
     Dates: start: 20200331, end: 20200401
  2. POLYETHYLENE GLYCOL [Concomitant]
     Active Substance: POLYETHYLENE GLYCOLS
     Dosage: UNK
  3. LIDOCAINE. [Concomitant]
     Active Substance: LIDOCAINE
     Dosage: UNK
  4. ALUMINUM MAGNESIUM HYDROXIDE [Concomitant]
     Dosage: UNK
  5. FAMOTIDINE. [Concomitant]
     Active Substance: FAMOTIDINE
     Dosage: UNK
  6. LACTOBACILLUS RHAMNOSUS [Concomitant]
     Active Substance: LACTOBACILLUS RHAMNOSUS
     Dosage: UNK
  7. ONDANSETRON [Concomitant]
     Active Substance: ONDANSETRON
     Dosage: UNK
  8. IOHEXOL [Concomitant]
     Active Substance: IOHEXOL
     Dosage: UNK
  9. IOPAMIDOL [Concomitant]
     Active Substance: IOPAMIDOL
     Dosage: UNK

REACTIONS (7)
  - Pain [Unknown]
  - Blood bilirubin increased [Unknown]
  - Gilbert^s syndrome [Unknown]
  - Product use in unapproved indication [Unknown]
  - Abdominal discomfort [Unknown]
  - Off label use [Unknown]
  - Liver injury [Not Recovered/Not Resolved]

NARRATIVE: CASE EVENT DATE: 20200401
